FAERS Safety Report 11182943 (Version 31)
Quarter: 2022Q3

REPORT INFORMATION
  Report Type: Spontaneous
  Country: CA (occurrence: CA)
  Receive Date: 20150611
  Receipt Date: 20220711
  Transmission Date: 20221027
  Serious: Yes (Other)
  Sender: FDA-Public Use
  Company Number: CA-PFIZER INC-2015191806

PATIENT
  Age: 72 Year
  Sex: Female

DRUGS (66)
  1. ENBREL [Interacting]
     Active Substance: ETANERCEPT
     Indication: Rheumatoid arthritis
     Dosage: 50 MG, QWK
     Route: 058
     Dates: start: 200612, end: 201302
  2. ENBREL [Interacting]
     Active Substance: ETANERCEPT
     Dosage: 50 MILLIGRAM, QWK
     Route: 065
  3. ENBREL [Interacting]
     Active Substance: ETANERCEPT
     Dosage: 50 MG
     Route: 065
  4. METHOTREXATE SODIUM [Interacting]
     Active Substance: METHOTREXATE SODIUM
     Indication: Rheumatoid arthritis
     Dosage: 2.5 MG, UNK
     Route: 058
     Dates: start: 200105, end: 201302
  5. METHOTREXATE SODIUM [Interacting]
     Active Substance: METHOTREXATE SODIUM
     Dosage: 20 MG, UNK
     Route: 058
     Dates: start: 200105, end: 200302
  6. METHOTREXATE SODIUM [Interacting]
     Active Substance: METHOTREXATE SODIUM
     Dosage: 25 MG, UNK
     Route: 058
     Dates: start: 200302, end: 200310
  7. METHOTREXATE SODIUM [Interacting]
     Active Substance: METHOTREXATE SODIUM
     Dosage: 10 MG, UNK
     Route: 058
     Dates: start: 200311, end: 200312
  8. METHOTREXATE SODIUM [Interacting]
     Active Substance: METHOTREXATE SODIUM
     Dosage: 20 MG, UNK
     Route: 058
  9. METHOTREXATE SODIUM [Interacting]
     Active Substance: METHOTREXATE SODIUM
     Dosage: 25 MG, UNK
     Route: 058
  10. METHOTREXATE SODIUM [Interacting]
     Active Substance: METHOTREXATE SODIUM
     Dosage: 10 MG, UNK
     Route: 058
  11. METHOTREXATE SODIUM [Interacting]
     Active Substance: METHOTREXATE SODIUM
     Dosage: 2.5 MG, UNK
     Route: 058
  12. METHOTREXATE SODIUM [Interacting]
     Active Substance: METHOTREXATE SODIUM
     Dosage: 25 MILLIGRAM
     Route: 065
  13. METHOTREXATE SODIUM [Interacting]
     Active Substance: METHOTREXATE SODIUM
     Dosage: UNK
     Route: 065
  14. METHOTREXATE SODIUM [Interacting]
     Active Substance: METHOTREXATE SODIUM
     Indication: Rheumatoid arthritis
     Dosage: 20 MG, UNK
     Route: 065
  15. METHOTREXATE SODIUM [Interacting]
     Active Substance: METHOTREXATE SODIUM
     Dosage: 25 MG, UNK
     Route: 065
  16. METHOTREXATE SODIUM [Interacting]
     Active Substance: METHOTREXATE SODIUM
     Dosage: 7.5 UNK
     Route: 058
  17. METHOTREXATE SODIUM [Interacting]
     Active Substance: METHOTREXATE SODIUM
     Dosage: 10 MILLIGRAM
     Route: 058
  18. METHOTREXATE SODIUM [Interacting]
     Active Substance: METHOTREXATE SODIUM
     Dosage: 2.5 MILLIGRAM
     Route: 058
  19. CELEBREX [Interacting]
     Active Substance: CELECOXIB
     Indication: Arthritis
     Dosage: 50 MG, QWK
     Route: 065
  20. CELEBREX [Interacting]
     Active Substance: CELECOXIB
     Indication: Rheumatoid arthritis
     Dosage: UNK
     Route: 065
  21. SULFASALAZINE [Interacting]
     Active Substance: SULFASALAZINE
     Indication: Rheumatoid arthritis
     Dosage: 2 G, QD
     Route: 065
     Dates: start: 200105, end: 200302
  22. SULFASALAZINE [Interacting]
     Active Substance: SULFASALAZINE
     Dosage: 500 MG, UNK
     Route: 065
  23. SULFASALAZINE [Interacting]
     Active Substance: SULFASALAZINE
     Dosage: 2 MG, UNK
     Route: 065
  24. SULFASALAZINE [Interacting]
     Active Substance: SULFASALAZINE
     Dosage: 2 GRAM
     Route: 065
  25. SULFASALAZINE [Interacting]
     Active Substance: SULFASALAZINE
     Dosage: UNK
     Route: 065
  26. TOFACITINIB CITRATE [Interacting]
     Active Substance: TOFACITINIB CITRATE
     Dosage: UNK
     Route: 065
  27. ARAVA [Interacting]
     Active Substance: LEFLUNOMIDE
     Indication: Arthritis
     Dosage: 10 MG, UNK
     Route: 065
     Dates: start: 200902
  28. ARAVA [Interacting]
     Active Substance: LEFLUNOMIDE
     Indication: Rheumatoid arthritis
     Dosage: 20 MG, UNK
     Route: 065
  29. ARAVA [Interacting]
     Active Substance: LEFLUNOMIDE
     Dosage: UNK MG
     Route: 065
  30. ARAVA [Interacting]
     Active Substance: LEFLUNOMIDE
     Dosage: 50 MILLIGRAM
     Route: 065
  31. ARAVA [Interacting]
     Active Substance: LEFLUNOMIDE
     Dosage: UNK
     Route: 065
  32. PREDNISONE [Interacting]
     Active Substance: PREDNISONE
     Indication: Arthritis
     Dosage: UNK
     Route: 065
     Dates: end: 201412
  33. PREDNISONE [Interacting]
     Active Substance: PREDNISONE
     Indication: Rheumatoid arthritis
  34. ORENCIA [Interacting]
     Active Substance: ABATACEPT
     Indication: Rheumatoid arthritis
     Dosage: 250 MG, UNK
     Route: 058
     Dates: start: 201302
  35. ORENCIA [Interacting]
     Active Substance: ABATACEPT
     Dosage: 250 MILLIGRAM
  36. ORENCIA [Interacting]
     Active Substance: ABATACEPT
     Dosage: UNK
     Route: 065
  37. RITUXIMAB [Interacting]
     Active Substance: RITUXIMAB
     Indication: Rheumatoid arthritis
     Dosage: UNK
     Route: 042
  38. PLAQUENIL [Interacting]
     Active Substance: HYDROXYCHLOROQUINE SULFATE
     Indication: Rheumatoid arthritis
     Dosage: 300 MG, UNK
     Route: 065
  39. PLAQUENIL [Interacting]
     Active Substance: HYDROXYCHLOROQUINE SULFATE
     Indication: Rheumatoid arthritis
     Dosage: 300 MG, UNK
     Route: 065
  40. PLAQUENIL [Interacting]
     Active Substance: HYDROXYCHLOROQUINE SULFATE
     Dosage: 400 MG, QD
     Route: 065
  41. PLAQUENIL [Interacting]
     Active Substance: HYDROXYCHLOROQUINE SULFATE
     Dosage: 400 MILLIGRAM, QD
     Route: 048
  42. LEFLUNOMIDE [Interacting]
     Active Substance: LEFLUNOMIDE
     Indication: Rheumatoid arthritis
     Dosage: 20 MG, UNK
     Route: 048
  43. LEFLUNOMIDE [Interacting]
     Active Substance: LEFLUNOMIDE
     Dosage: 10 MG, UNK
     Route: 048
  44. LEFLUNOMIDE [Interacting]
     Active Substance: LEFLUNOMIDE
     Dosage: 20 MG, UNK
     Route: 065
  45. LEFLUNOMIDE [Interacting]
     Active Substance: LEFLUNOMIDE
     Dosage: 10 MG, UNK
     Route: 048
  46. LEFLUNOMIDE [Interacting]
     Active Substance: LEFLUNOMIDE
     Dosage: 20 MILLIGRAM (1 EVERY 1 DAYS)
     Route: 065
  47. LEFLUNOMIDE [Interacting]
     Active Substance: LEFLUNOMIDE
     Indication: Rheumatoid arthritis
     Dosage: 10 MG, UNK
     Route: 048
  48. LEFLUNOMIDE [Interacting]
     Active Substance: LEFLUNOMIDE
     Dosage: 20 MG, QD
     Route: 065
  49. LEFLUNOMIDE [Interacting]
     Active Substance: LEFLUNOMIDE
     Dosage: 20 MILLIGRAM
     Route: 065
  50. LEFLUNOMIDE [Interacting]
     Active Substance: LEFLUNOMIDE
     Dosage: 10 MILLIGRAM
     Route: 065
  51. PREDNISONE [Interacting]
     Active Substance: PREDNISONE
     Indication: Arthritis
     Dosage: UNK
     Route: 065
  52. PREDNISONE [Interacting]
     Active Substance: PREDNISONE
     Dosage: UNK
     Route: 065
  53. HYDROXYCHLOROQUINE SULFATE [Interacting]
     Active Substance: HYDROXYCHLOROQUINE SULFATE
     Indication: Rheumatoid arthritis
     Dosage: 300 MG, UNK
     Route: 065
  54. HYDROXYCHLOROQUINE SULFATE [Interacting]
     Active Substance: HYDROXYCHLOROQUINE SULFATE
     Dosage: 400 MILLIGRAM
     Route: 065
  55. HYDROXYCHLOROQUINE [Interacting]
     Active Substance: HYDROXYCHLOROQUINE
     Indication: Rheumatoid arthritis
     Dosage: 300 MG, UNK
     Route: 065
  56. ACTEMRA [Interacting]
     Active Substance: TOCILIZUMAB
     Dosage: UNK
     Route: 058
  57. HUMIRA [Interacting]
     Active Substance: ADALIMUMAB
     Dosage: UNK
     Route: 065
  58. HUMIRA [Interacting]
     Active Substance: ADALIMUMAB
     Dosage: UNK
     Route: 065
  59. CELECOXIB [Interacting]
     Active Substance: CELECOXIB
     Indication: Rheumatoid arthritis
     Dosage: 50 MILLIGRAM
     Route: 065
  60. CELECOXIB [Interacting]
     Active Substance: CELECOXIB
     Indication: Arthritis
     Dosage: 50 MILLIGRAM, QWK
     Route: 065
  61. XELJANZ [Concomitant]
     Active Substance: TOFACITINIB CITRATE
     Dosage: 5 MG, BID
     Route: 048
  62. XELJANZ [Concomitant]
     Active Substance: TOFACITINIB CITRATE
     Dosage: 10 MILLIGRAM, Q12H
     Route: 048
  63. XELJANZ [Concomitant]
     Active Substance: TOFACITINIB CITRATE
     Dosage: 5 MILLIGRAM, Q12H
     Route: 048
  64. FOLIC ACID [Concomitant]
     Active Substance: FOLIC ACID
     Dosage: 10 MILLIGRAM
     Route: 065
  65. SIMPONI [Concomitant]
     Active Substance: GOLIMUMAB
     Dosage: UNK
     Route: 058
  66. TOFACITINIB [Concomitant]
     Active Substance: TOFACITINIB
     Dosage: UNK
     Route: 065

REACTIONS (26)
  - Neoplasm malignant [Not Recovered/Not Resolved]
  - Rheumatoid arthritis [Not Recovered/Not Resolved]
  - Condition aggravated [Not Recovered/Not Resolved]
  - Thyroid neoplasm [Not Recovered/Not Resolved]
  - Hepatotoxicity [Unknown]
  - Nausea [Not Recovered/Not Resolved]
  - Joint swelling [Not Recovered/Not Resolved]
  - Pain [Not Recovered/Not Resolved]
  - Swelling [Not Recovered/Not Resolved]
  - Oral candidiasis [Not Recovered/Not Resolved]
  - Therapeutic product effect decreased [Not Recovered/Not Resolved]
  - Peripheral swelling [Not Recovered/Not Resolved]
  - Bone swelling [Not Recovered/Not Resolved]
  - Contraindicated product administered [Not Recovered/Not Resolved]
  - Drug ineffective [Not Recovered/Not Resolved]
  - Candida infection [Not Recovered/Not Resolved]
  - Toxicity to various agents [Not Recovered/Not Resolved]
  - Drug interaction [Not Recovered/Not Resolved]
  - Arthralgia [Not Recovered/Not Resolved]
  - Loss of personal independence in daily activities [Not Recovered/Not Resolved]
  - Stomatitis [Not Recovered/Not Resolved]
  - Off label use [Not Recovered/Not Resolved]
  - Prescribed overdose [Not Recovered/Not Resolved]
  - Pyrexia [Not Recovered/Not Resolved]
  - Treatment failure [Not Recovered/Not Resolved]
  - Headache [Not Recovered/Not Resolved]
